FAERS Safety Report 10673755 (Version 2)
Quarter: 2015Q1

REPORT INFORMATION
  Report Type: Spontaneous
  Country: JP (occurrence: JP)
  Receive Date: 20141224
  Receipt Date: 20150113
  Transmission Date: 20150720
  Serious: Yes (Death, Other)
  Sender: FDA-Public Use
  Company Number: JP-ELI_LILLY_AND_COMPANY-JP201412007390

PATIENT
  Age: 68 Year
  Sex: Male

DRUGS (2)
  1. TS 1 [Concomitant]
     Active Substance: GIMERACIL\OTERACIL\TEGAFUR
     Indication: DUCTAL ADENOCARCINOMA OF PANCREAS
     Route: 048
  2. GEMZAR [Suspect]
     Active Substance: GEMCITABINE HYDROCHLORIDE
     Indication: DUCTAL ADENOCARCINOMA OF PANCREAS
     Dosage: UNK
     Route: 042

REACTIONS (5)
  - Multi-organ failure [Fatal]
  - Depressed level of consciousness [Unknown]
  - Pyrexia [Unknown]
  - Decreased appetite [Unknown]
  - Tumour invasion [Unknown]
